FAERS Safety Report 17031619 (Version 1)
Quarter: 2019Q4

REPORT INFORMATION
  Report Type: Report from Study
  Country: ES (occurrence: ES)
  Receive Date: 20191114
  Receipt Date: 20191114
  Transmission Date: 20200122
  Serious: Yes (Hospitalization)
  Sender: FDA-Public Use
  Company Number: ES-ZYDUS-043079

PATIENT
  Age: 77 Year
  Sex: Male

DRUGS (6)
  1. IBUPROFEN. [Interacting]
     Active Substance: IBUPROFEN
     Indication: PRODUCT USED FOR UNKNOWN INDICATION
     Route: 048
     Dates: start: 20171016, end: 20171113
  2. CARVEDILOL/CARVEDILOL HYDROCHLODRIDE [Suspect]
     Active Substance: CARVEDILOL HYDROCHLORIDE
     Indication: PRODUCT USED FOR UNKNOWN INDICATION
     Route: 048
     Dates: start: 20110922, end: 20171113
  3. MANIDIPINE [Interacting]
     Active Substance: MANIDIPINE
     Indication: PRODUCT USED FOR UNKNOWN INDICATION
     Dosage: 13-NOV-2017
     Route: 048
     Dates: start: 20141203, end: 20171113
  4. ENALAPRIL [Interacting]
     Active Substance: ENALAPRIL
     Indication: HYPERTENSION
     Route: 048
     Dates: start: 20130925, end: 20171113
  5. FUROSEMIDE. [Interacting]
     Active Substance: FUROSEMIDE
     Indication: PRODUCT USED FOR UNKNOWN INDICATION
     Route: 048
     Dates: start: 20111010, end: 20171113
  6. ALLOPURINOL/ALLOPURINOL SODIUM [Concomitant]
     Indication: GOUT
     Route: 048
     Dates: start: 20100323, end: 20171113

REACTIONS (2)
  - Acute kidney injury [Recovered/Resolved]
  - Dehydration [Recovered/Resolved]

NARRATIVE: CASE EVENT DATE: 20171112
